FAERS Safety Report 21215574 (Version 1)
Quarter: 2022Q3

REPORT INFORMATION
  Report Type: Spontaneous
  Country: US (occurrence: US)
  Receive Date: 20220816
  Receipt Date: 20220816
  Transmission Date: 20221027
  Serious: Yes (Hospitalization)
  Sender: FDA-Public Use
  Company Number: US-PFIZER INC-202201054486

PATIENT
  Age: 63 Year
  Sex: Female

DRUGS (1)
  1. XELJANZ [Suspect]
     Active Substance: TOFACITINIB CITRATE
     Dosage: 5 MG, 2X/DAY
     Route: 048
     Dates: start: 202204

REACTIONS (7)
  - Herpes zoster [Recovered/Resolved]
  - Gastritis [Recovering/Resolving]
  - Sciatica [Not Recovered/Not Resolved]
  - Arthritis [Unknown]
  - Vertigo [Unknown]
  - Vomiting [Unknown]
  - Burning sensation [Unknown]

NARRATIVE: CASE EVENT DATE: 20220601
